FAERS Safety Report 8287982-5 (Version None)
Quarter: 2012Q2

REPORT INFORMATION
  Report Type: 
  Country: None (occurrence: None)
  Receive Date: 20120411
  Receipt Date: 20120411
  Transmission Date: 20120825
  Serious: Yes (Hospitalization)
  Sender: FDA-Public Use
  Company Number: None

PATIENT
  Sex: Male
  Weight: 89.4 kg

DRUGS (2)
  1. CISPLATIN [Suspect]
     Dosage: 152 MG
     Dates: end: 20120320
  2. VINORELBINE TARTRATE [Suspect]
     Dosage: 122 MG
     Dates: end: 20120327

REACTIONS (1)
  - FEBRILE NEUTROPENIA [None]
